FAERS Safety Report 12178667 (Version 1)
Quarter: 2016Q1

REPORT INFORMATION
  Report Type: Spontaneous
  Country: US (occurrence: None)
  Receive Date: 20160314
  Receipt Date: 20160314
  Transmission Date: 20160526
  Serious: Yes (Hospitalization)
  Sender: FDA-Public Use
  Company Number: None

PATIENT
  Age: 20 Year
  Sex: Female
  Weight: 79.38 kg

DRUGS (1)
  1. SELECT-OB PLUS DHA PRENATAL SUPPLEMENT PLUS DHA [Suspect]
     Active Substance: .ALPHA.-TOCOPHEROL ACETATE, DL-\.BETA.-CAROTENE\ASCORBIC ACID\CHOLECALCIFEROL\COBALAMIN\DOCONEXENT\FOLIC ACID\IRON\LEVOMEFOLATE CALCIUM\MAGNESIUM OXIDE\NIACINAMIDE\PYRIDOXINE HYDROCHLORIDE\RIBOFLAVIN\THIAMINE MONONITRATE\VITAMIN A ACETATE\ZINC OXIDE
     Indication: VITAMIN SUPPLEMENTATION
     Dosage: 2 PILLS AT BEDTIME TAKEN BY MOUTH
     Route: 048
     Dates: start: 20160106, end: 20160110

REACTIONS (3)
  - Exposure during pregnancy [None]
  - Vaginal haemorrhage [None]
  - Abortion spontaneous [None]

NARRATIVE: CASE EVENT DATE: 20160111
